FAERS Safety Report 10025568 (Version 1)
Quarter: 2014Q1

REPORT INFORMATION
  Report Type: Spontaneous
  Country: CA (occurrence: CA)
  Receive Date: 20140320
  Receipt Date: 20140320
  Transmission Date: 20141002
  Serious: Yes (Hospitalization)
  Sender: FDA-Public Use
  Company Number: CA-PFIZER INC-2014077666

PATIENT
  Age: 66 Year
  Sex: Male

DRUGS (1)
  1. ADVIL EXTRA STRENGTH [Suspect]
     Dosage: 400 MG, SINGLE
     Route: 048

REACTIONS (9)
  - Chest discomfort [Recovered/Resolved]
  - Cough [Recovered/Resolved]
  - Dyspnoea [Recovered/Resolved]
  - Eye pruritus [Recovered/Resolved]
  - Eye swelling [Recovered/Resolved]
  - Face oedema [Recovered/Resolved]
  - Palpitations [Recovered/Resolved]
  - Rhinorrhoea [Recovered/Resolved]
  - Swelling face [Recovered/Resolved]
